FAERS Safety Report 9286452 (Version 1)
Quarter: 2013Q2

REPORT INFORMATION
  Report Type: Spontaneous
  Country: US (occurrence: None)
  Receive Date: 20130503
  Receipt Date: 20130503
  Transmission Date: 20140414
  Serious: Yes (Other)
  Sender: FDA-Public Use
  Company Number: 2013P1005119

PATIENT
  Age: 62 Year
  Sex: Male

DRUGS (10)
  1. AMLODIPINE [Suspect]
  2. ISOSORBIDE [Concomitant]
  3. DINITRATE [Concomitant]
  4. LISINOPRIL [Concomitant]
  5. METOPROLOL [Concomitant]
  6. ASPIRIN [Concomitant]
  7. CLOPIDROGEL [Concomitant]
  8. FINOFIBRATE [Concomitant]
  9. SIMVASTATIN [Concomitant]
  10. RANITIDINE [Concomitant]

REACTIONS (2)
  - Rash [None]
  - Cutaneous lupus erythematosus [None]
